FAERS Safety Report 4731306-4 (Version None)
Quarter: 2005Q3

REPORT INFORMATION
  Report Type: 
  Country: None (occurrence: None)
  Receive Date: 20050802
  Receipt Date: 20050712
  Transmission Date: 20060218
  Serious: Yes (Hospitalization)
  Sender: FDA-Public Use
  Company Number: BEWYE832614JUL05

PATIENT
  Sex: Female

DRUGS (1)
  1. ENBREL [Suspect]
     Indication: RHEUMATOID ARTHRITIS

REACTIONS (6)
  - BACTERIAL TOXAEMIA [None]
  - EAR INFECTION [None]
  - INFECTION [None]
  - PHARYNGITIS [None]
  - PURPURA [None]
  - RHINITIS [None]
